FAERS Safety Report 6117285-6 (Version None)
Quarter: 2009Q1

REPORT INFORMATION
  Report Type: 
  Country: None (occurrence: None)
  Receive Date: 20090314
  Receipt Date: 20090112
  Transmission Date: 20090719
  Serious: No
  Sender: FDA-Public Use
  Company Number: US-ABBOTT-09P-163-0497406-00

PATIENT
  Sex: Male

DRUGS (2)
  1. HUMIRA [Suspect]
     Indication: ANKYLOSING SPONDYLITIS
     Dates: start: 20080901, end: 20081201
  2. HUMIRA [Suspect]
     Dates: start: 20080901

REACTIONS (2)
  - DRUG INEFFECTIVE [None]
  - INJECTION SITE IRRITATION [None]
